FAERS Safety Report 25121725 (Version 1)
Quarter: 2025Q1

REPORT INFORMATION
  Report Type: Report from Study
  Country: IN (occurrence: IN)
  Receive Date: 20250326
  Receipt Date: 20250326
  Transmission Date: 20250409
  Serious: Yes (Death, Hospitalization, Other)
  Sender: ROCHE
  Company Number: IN-ROCHE-10000105741

PATIENT
  Age: 58 Year
  Sex: Male
  Weight: 53.6 kg

DRUGS (3)
  1. TECENTRIQ [Suspect]
     Active Substance: ATEZOLIZUMAB
     Indication: Lung neoplasm malignant
     Route: 042
     Dates: start: 20240410
  2. TECENTRIQ [Suspect]
     Active Substance: ATEZOLIZUMAB
     Route: 042
     Dates: start: 20240410
  3. CARBOPLATIN [Concomitant]
     Active Substance: CARBOPLATIN

REACTIONS (15)
  - Off label use [Unknown]
  - Haemoglobin decreased [Unknown]
  - Hypertension [Unknown]
  - Death [Fatal]
  - Disease progression [Unknown]
  - Gene mutation [Unknown]
  - Paralysis [Fatal]
  - Drug ineffective [Unknown]
  - Cerebral infarction [Fatal]
  - Multiple organ dysfunction syndrome [Fatal]
  - Lung cancer metastatic [Fatal]
  - Ascites [Unknown]
  - Anaphylactic reaction [Unknown]
  - Ascites [Unknown]
  - Weight decreased [Unknown]

NARRATIVE: CASE EVENT DATE: 20240613
